FAERS Safety Report 6589278-6 (Version None)
Quarter: 2010Q1

REPORT INFORMATION
  Report Type: 
  Country: None (occurrence: None)
  Receive Date: 20100218
  Receipt Date: 20100209
  Transmission Date: 20100710
  Serious: Yes (Hospitalization)
  Sender: FDA-Public Use
  Company Number: IT-PFIZER INC-2010018093

PATIENT
  Age: 70 Year
  Sex: Male

DRUGS (1)
  1. TORVAST [Suspect]
     Dosage: 40 MG, UNK
     Dates: start: 20091001

REACTIONS (1)
  - INFARCTION [None]
